FAERS Safety Report 7402990-1 (Version None)
Quarter: 2011Q1

REPORT INFORMATION
  Report Type: 
  Country: None (occurrence: None)
  Receive Date: 20110331
  Receipt Date: 20110316
  Transmission Date: 20110831
  Serious: Yes (Other)
  Sender: FDA-Public Use
  Company Number: AUR-APL-2011-01035

PATIENT
  Sex: Female

DRUGS (11)
  1. BUTRANS [Concomitant]
  2. CELEBREX [Concomitant]
  3. CIPRALEX [Concomitant]
  4. OMEPRAZOLE [Concomitant]
  5. SIMVASTATIN [Suspect]
     Indication: PAIN
     Dosage: 40MG
  6. LYRICA [Suspect]
     Indication: FIBROMYALGIA
     Dosage: 300MG-TID-
  7. DEXAMPHETAMINE [Concomitant]
  8. TRAMADOL HCL [Concomitant]
  9. LYRINEL [Concomitant]
  10. XENICAL [Concomitant]
  11. SANDOCAL 1000 [Concomitant]

REACTIONS (5)
  - SWOLLEN TONGUE [None]
  - MUSCLE TWITCHING [None]
  - BURNING SENSATION [None]
  - MUSCLE SPASMS [None]
  - BACK PAIN [None]
